FAERS Safety Report 13783482 (Version 1)
Quarter: 2017Q3

REPORT INFORMATION
  Report Type: Spontaneous
  Country: US (occurrence: US)
  Receive Date: 20170724
  Receipt Date: 20170724
  Transmission Date: 20171127
  Serious: No
  Sender: FDA-Public Use
  Company Number: US-B.I. PHARMACEUTICALS,INC./RIDGEFIELD-2017-BI-040466

PATIENT
  Age: 68 Year
  Sex: Male

DRUGS (6)
  1. GILOTRIF [Suspect]
     Active Substance: AFATINIB
     Indication: METASTASES TO LIVER
  2. RAMELTON [Concomitant]
     Indication: PRODUCT USED FOR UNKNOWN INDICATION
     Route: 065
  3. MICRO K [Concomitant]
     Indication: PRODUCT USED FOR UNKNOWN INDICATION
     Route: 065
  4. LISINOPRIL. [Concomitant]
     Active Substance: LISINOPRIL
     Indication: PRODUCT USED FOR UNKNOWN INDICATION
     Route: 065
  5. GILOTRIF [Suspect]
     Active Substance: AFATINIB
     Indication: RECTAL CANCER
     Dosage: FORM STRENGTH: 40 MG; FORMULATION: TABLET? ADMINISTRATION CORRECT? NR(NOT REPORTED) ?ACTION(S) TAKEN
     Route: 048
     Dates: start: 20170612
  6. MS CONTIN [Concomitant]
     Active Substance: MORPHINE SULFATE
     Indication: PRODUCT USED FOR UNKNOWN INDICATION
     Route: 065

REACTIONS (3)
  - Rash [Not Recovered/Not Resolved]
  - Off label use [Unknown]
  - Pruritus [Not Recovered/Not Resolved]

NARRATIVE: CASE EVENT DATE: 20170612
